FAERS Safety Report 7464845-6 (Version None)
Quarter: 2011Q2

REPORT INFORMATION
  Report Type: 
  Country: None (occurrence: None)
  Receive Date: 20110509
  Receipt Date: 20081022
  Transmission Date: 20111010
  Serious: Yes (Death, Other)
  Sender: FDA-Public Use
  Company Number: US-BAYER-200836634NA

PATIENT
  Age: 68 Year
  Sex: Female
  Weight: 92.971 kg

DRUGS (26)
  1. TRASYLOL [Suspect]
     Indication: AORTIC SURGERY
     Dosage: UNK
     Route: 042
     Dates: start: 20061012, end: 20061012
  2. TRASYLOL [Suspect]
     Indication: MITRAL VALVE REPLACEMENT
     Dosage: 200 ML, CARDIOPULMONARY BYPASS PUMP
     Dates: start: 20070420, end: 20070420
  3. SYNTHROID [Concomitant]
     Dosage: 200 MCG DAILY
     Route: 048
  4. METFORMIN [Concomitant]
     Dosage: 1,000 MG TWICE A DAY
     Route: 048
  5. INSULIN [Concomitant]
     Dosage: DRIP,2-10 UNITS/HOUR
     Route: 042
     Dates: start: 20061012, end: 20061012
  6. ANCEF [Concomitant]
     Dosage: 3 GRAMS
     Dates: start: 20061012, end: 20061012
  7. HEPARIN [Concomitant]
     Dosage: 10,000 UNITS, CARDIOPULMONARY BYPASS PUMP
     Dates: start: 20061012, end: 20061012
  8. LOPRESSOR [Concomitant]
     Dosage: 25 MG DAILY
     Route: 048
  9. ZESTRIL [Concomitant]
     Dosage: 20 MG NIGHTLY
     Route: 048
  10. INSULIN [Concomitant]
     Dosage: 25 UNITS NIGHTLY
     Route: 058
  11. INSULIN [Concomitant]
     Dosage: 3 UNITS, 5 UNITS,5 UNITS
     Route: 042
     Dates: start: 20061012, end: 20061012
  12. PROVIGIL [Concomitant]
     Dosage: 20 MG
     Route: 048
  13. INSULIN [Concomitant]
     Dosage: 3 UNITS
     Route: 042
     Dates: start: 20070420, end: 20070420
  14. HEPARIN [Concomitant]
     Dosage: 5,000 UNITS, CARDIOPULMONARY BYPASS PUMP
     Dates: start: 20070420, end: 20070420
  15. VANCOMYCIN [Concomitant]
     Dosage: UNK
     Route: 042
     Dates: start: 20070420, end: 20070420
  16. DESMOPRESSIN ACETATE [Concomitant]
     Dosage: 23.7 MG
     Route: 042
     Dates: start: 20070420, end: 20070420
  17. PRANDIN [Concomitant]
     Dosage: 1 MG THREE TIMES A DAY WITH MEALS
     Route: 048
  18. ZOCOR [Concomitant]
     Dosage: 80 MG DAILY
     Route: 048
  19. TRASYLOL [Suspect]
     Indication: CORONARY ARTERY BYPASS
  20. TRASYLOL [Suspect]
     Indication: CARDIAC OPERATION
  21. TRASYLOL [Suspect]
     Indication: AORTIC VALVE REPLACEMENT
  22. TRASYLOL [Suspect]
     Indication: TRICUSPID VALVE REPAIR
     Dosage: 1MG TEST DOSE, ILLEGIBLE BOLUS, 30-50 CC/HOUR
     Route: 042
     Dates: start: 20070420, end: 20070420
  23. TRASYLOL [Suspect]
     Indication: STERNOTOMY
  24. HEPARIN [Concomitant]
     Dosage: 40,000 UNITS
     Dates: start: 20061012, end: 20061012
  25. ALBUMIN (HUMAN) [Concomitant]
     Dosage: 50 ML, CARDIOPULMONARY BYPASS PUMP
     Route: 042
     Dates: start: 20061012, end: 20061012
  26. ALBUMIN (HUMAN) [Concomitant]
     Dosage: 50 ML, CARDIOPULMONARY BYPASS PUMP
     Dates: start: 20070420, end: 20070420

REACTIONS (11)
  - INJURY [None]
  - PAIN [None]
  - RENAL IMPAIRMENT [None]
  - ANHEDONIA [None]
  - DEATH [None]
  - RENAL INJURY [None]
  - UNEVALUABLE EVENT [None]
  - ANXIETY [None]
  - RENAL FAILURE [None]
  - STRESS [None]
  - FEAR [None]
